FAERS Safety Report 22040817 (Version 1)
Quarter: 2023Q1

REPORT INFORMATION
  Report Type: Spontaneous
  Country: DE (occurrence: DE)
  Receive Date: 20230227
  Receipt Date: 20230227
  Transmission Date: 20230417
  Serious: Yes (Other)
  Sender: FDA-Public Use
  Company Number: None

PATIENT
  Age: 48 Year
  Sex: Female
  Weight: 66 kg

DRUGS (1)
  1. PAXLOVID [Suspect]
     Active Substance: NIRMATRELVIR\RITONAVIR
     Indication: COVID-19 treatment
     Dosage: [PF-07321332 300 MG]/[RITONAVIR 100 MG]; 2X/DAY
     Route: 048
     Dates: start: 20230109, end: 20230114

REACTIONS (24)
  - Haematochezia [Recovered/Resolved]
  - COVID-19 [Unknown]
  - Disease recurrence [Unknown]
  - Pain [Not Recovered/Not Resolved]
  - Liver disorder [Unknown]
  - Back pain [Recovered/Resolved]
  - Abdominal distension [Recovered/Resolved]
  - Dry skin [Recovered/Resolved]
  - Pruritus [Recovered/Resolved]
  - Pain [Unknown]
  - Ear pruritus [Recovered/Resolved]
  - Rash macular [Recovered/Resolved]
  - Liver tenderness [Unknown]
  - Vulvovaginal dryness [Recovered/Resolved]
  - Musculoskeletal chest pain [Not Recovered/Not Resolved]
  - Swelling face [Recovered/Resolved]
  - Dry mouth [Recovered/Resolved]
  - Helplessness [Unknown]
  - Dizziness [Recovered/Resolved]
  - Spinal pain [Recovered/Resolved]
  - Ear swelling [Recovered/Resolved]
  - Diarrhoea [Recovered/Resolved]
  - Nausea [Recovered/Resolved]
  - Faeces hard [Recovered/Resolved]

NARRATIVE: CASE EVENT DATE: 20230101
